FAERS Safety Report 7968015-4 (Version None)
Quarter: 2011Q4

REPORT INFORMATION
  Report Type: 
  Country: None (occurrence: None)
  Receive Date: 20111209
  Receipt Date: 20111202
  Transmission Date: 20120403
  Serious: Yes (Other)
  Sender: FDA-Public Use
  Company Number: US-BAYER-2011-116873

PATIENT
  Age: 65 Year
  Sex: Male
  Weight: 83.447 kg

DRUGS (16)
  1. NEXAVAR [Suspect]
     Dosage: 400 MG, BID
     Route: 048
  2. ZOLPIDEM [Concomitant]
     Dosage: UNK
  3. PLAVIX [Concomitant]
     Dosage: 75 MG, UNK
  4. AMITRIPTYLINE HCL [Concomitant]
     Dosage: 25 MG, UNK
  5. ANTARA (MICRONIZED) [Concomitant]
     Dosage: 43 MG, UNK
  6. SAXAGLIPTIN HYDROCHLORIDE [Concomitant]
     Dosage: 2.5/1000
  7. WELCHOL [Concomitant]
  8. NEXIUM [Concomitant]
     Dosage: 20 MG, UNK
  9. METFORMIN HCL [Concomitant]
     Dosage: 2.5/1000
  10. TOPAMAX [Concomitant]
     Dosage: UNK
  11. LIPITOR [Concomitant]
     Dosage: 10 MG, UNK
  12. HYDROCODONE BITARTRATE AND ACETAMINOPHEN [Concomitant]
     Dosage: 2.5/500
  13. NORVASC [Concomitant]
  14. IMDUR [Concomitant]
     Dosage: 30 MG, UNK
  15. ASPIRIN [Concomitant]
     Dosage: 81 MG, UNK
  16. ZANAFLEX [Concomitant]
     Dosage: UNK

REACTIONS (8)
  - APHAGIA [None]
  - ABDOMINAL PAIN [None]
  - PRURITUS [None]
  - WEIGHT DECREASED [None]
  - ABDOMINAL DISTENSION [None]
  - DRY SKIN [None]
  - ABDOMINAL TENDERNESS [None]
  - NAUSEA [None]
